FAERS Safety Report 13391496 (Version 1)
Quarter: 2017Q1

REPORT INFORMATION
  Report Type: Spontaneous
  Country: US (occurrence: US)
  Receive Date: 20170331
  Receipt Date: 20170331
  Transmission Date: 20170429
  Serious: No
  Sender: FDA-Public Use
  Company Number: None

PATIENT
  Age: 77 Year
  Sex: Male

DRUGS (2)
  1. NICOTINE GUM [Suspect]
     Active Substance: NICOTINE
     Indication: SMOKING CESSATION THERAPY
     Dosage: ?          QUANTITY:1 GUM;?
     Route: 048
  2. HCTZ [Concomitant]
     Active Substance: HYDROCHLOROTHIAZIDE

REACTIONS (8)
  - Hyperhidrosis [None]
  - Blood pressure increased [None]
  - Pain in jaw [None]
  - Depression [None]
  - Headache [None]
  - Nervousness [None]
  - Toothache [None]
  - Therapy cessation [None]

NARRATIVE: CASE EVENT DATE: 20170317
